FAERS Safety Report 5531499-5 (Version None)
Quarter: 2007Q4

REPORT INFORMATION
  Report Type: 
  Country: None (occurrence: None)
  Receive Date: 20071128
  Receipt Date: 20071112
  Transmission Date: 20080405
  Serious: Yes (Hospitalization)
  Sender: FDA-Public Use
  Company Number: VNL_00591_2007

PATIENT
  Sex: Female

DRUGS (4)
  1. APO-GO (APO-GO - APOMORPHINE HYDROCHLORIDE) (NOT SPECIFIED) [Suspect]
     Indication: PARKINSON'S DISEASE
     Dosage: (100 MG PER DAY SUBCUTANEOUS), (DF SUBCUTANEOUS)
     Route: 058
     Dates: start: 20060125, end: 20060828
  2. APO-GO (APO-GO - APOMORPHINE HYDROCHLORIDE) (NOT SPECIFIED) [Suspect]
     Indication: PARKINSON'S DISEASE
     Dosage: (100 MG PER DAY SUBCUTANEOUS), (DF SUBCUTANEOUS)
     Route: 058
     Dates: start: 20060828
  3. SINEMET [Concomitant]
  4. SYMMETREL [Concomitant]

REACTIONS (1)
  - CARDIAC VENTRICULAR DISORDER [None]
